FAERS Safety Report 5048716-0 (Version None)
Quarter: 2006Q3

REPORT INFORMATION
  Report Type: 
  Country: None (occurrence: None)
  Receive Date: 20060705
  Receipt Date: 20060621
  Transmission Date: 20061208
  Serious: Yes (Other)
  Sender: FDA-Public Use
  Company Number: HQWYE192512JUN06

PATIENT
  Age: 33 Year
  Sex: Female

DRUGS (10)
  1. RAPAMUNE [Suspect]
     Indication: RENAL TRANSPLANT
     Dosage: 2 MG PO OD ORAL
     Route: 048
  2. ALTACE [Concomitant]
  3. PREDNISONE TAB [Concomitant]
  4. TACROLIMUS (TACROLIMUS) [Concomitant]
  5. PALAFER (FERROUS FUMARATE) [Concomitant]
  6. CARDIZEM [Concomitant]
  7. TUMS (CALCIUM CARBONATE/MAGNESIUM CARBONATE/MAGNESIUM TRISILICATE) [Concomitant]
  8. SODIUM BICARBONATE IN PLASTIC CONTAINER [Concomitant]
  9. ARANESP [Concomitant]
  10. LIPITOR [Concomitant]

REACTIONS (1)
  - VASCULITIS GASTROINTESTINAL [None]
